FAERS Safety Report 5745366-5 (Version None)
Quarter: 2008Q2

REPORT INFORMATION
  Report Type: 
  Country: None (occurrence: None)
  Receive Date: 20080521
  Receipt Date: 20080512
  Transmission Date: 20081010
  Serious: Yes (Disabling, Other)
  Sender: FDA-Public Use
  Company Number: US-MERCK-0706USA03672

PATIENT
  Age: 33 Year
  Sex: Female

DRUGS (1)
  1. FOSAMAX [Suspect]
     Indication: OSTEOPOROSIS
     Route: 048
     Dates: start: 19990101, end: 20010101

REACTIONS (17)
  - ACUTE SINUSITIS [None]
  - CHOLELITHIASIS [None]
  - CONTUSION [None]
  - DENTAL CARIES [None]
  - ESSENTIAL HYPERTENSION [None]
  - FALL [None]
  - FOOT AMPUTATION [None]
  - GINGIVAL BLEEDING [None]
  - INFLAMMATORY BOWEL DISEASE [None]
  - LABYRINTHITIS [None]
  - MIGRAINE [None]
  - NASOPHARYNGITIS [None]
  - OBESITY [None]
  - PYELONEPHRITIS [None]
  - RENAL DISORDER [None]
  - TEMPOROMANDIBULAR JOINT SYNDROME [None]
  - URINARY TRACT INFECTION [None]
